FAERS Safety Report 9759506 (Version 1)
Quarter: 2013Q4

REPORT INFORMATION
  Report Type: Spontaneous
  Country: US (occurrence: None)
  Receive Date: 20131212
  Receipt Date: 20131212
  Transmission Date: 20140711
  Serious: Yes (Death)
  Sender: FDA-Public Use
  Company Number: CIO13074713

PATIENT
  Sex: Female

DRUGS (1)
  1. PEPTO [Suspect]
     Dosage: UNKNOWN, ORAL
     Route: 048

REACTIONS (2)
  - Drug hypersensitivity [None]
  - Unevaluable event [None]
